FAERS Safety Report 7952950-7 (Version None)
Quarter: 2011Q4

REPORT INFORMATION
  Report Type: 
  Country: None (occurrence: None)
  Receive Date: 20111201
  Receipt Date: 20111122
  Transmission Date: 20120403
  Serious: Yes (Hospitalization)
  Sender: FDA-Public Use
  Company Number: JP-JNJFOC-20091207478

PATIENT
  Sex: Male
  Weight: 60 kg

DRUGS (21)
  1. GOLIMUMAB [Suspect]
     Route: 058
     Dates: start: 20090803
  2. GOLIMUMAB [Suspect]
     Route: 058
     Dates: start: 20090515
  3. DICLOFENAC SODIUM [Concomitant]
     Indication: RHEUMATOID ARTHRITIS
     Route: 048
     Dates: start: 20090219
  4. GOLIMUMAB [Suspect]
     Indication: RHEUMATOID ARTHRITIS
     Route: 058
     Dates: start: 20091124
  5. KETOPROFEN [Concomitant]
     Indication: RHEUMATOID ARTHRITIS
     Route: 062
     Dates: start: 20100908
  6. MOHRUS TAPE [Concomitant]
     Indication: RHEUMATOID ARTHRITIS
     Route: 062
  7. GOLIMUMAB [Suspect]
     Route: 058
     Dates: start: 20090417
  8. PURSENNID [Concomitant]
     Indication: CONSTIPATION
     Route: 048
     Dates: start: 20090612
  9. ALENDRONATE SODIUM [Concomitant]
     Indication: OSTEOPOROSIS PROPHYLAXIS
     Route: 048
     Dates: end: 20091120
  10. RABEPRAZOLE SODIUM [Concomitant]
     Indication: PROPHYLAXIS AGAINST GASTROINTESTINAL ULCER
     Route: 048
  11. PREDNISOLONE [Concomitant]
     Route: 048
     Dates: start: 20090928
  12. GOLIMUMAB [Suspect]
     Route: 058
     Dates: start: 20090710
  13. ALENDRONATE SODIUM [Concomitant]
     Route: 048
     Dates: start: 20101204
  14. PREDNISOLONE [Concomitant]
     Indication: RHEUMATOID ARTHRITIS
     Route: 048
     Dates: start: 20090831, end: 20090928
  15. GOLIMUMAB [Suspect]
     Route: 058
     Dates: start: 20090929
  16. GOLIMUMAB [Suspect]
     Route: 058
     Dates: start: 20090831
  17. GOLIMUMAB [Suspect]
     Route: 058
     Dates: start: 20090612
  18. LAXOBERON [Concomitant]
     Indication: CONSTIPATION
     Route: 048
     Dates: start: 20090724
  19. GOLIMUMAB [Suspect]
     Route: 058
     Dates: start: 20091222
  20. GOLIMUMAB [Suspect]
     Route: 058
     Dates: start: 20091027
  21. ARAVA [Concomitant]
     Indication: RHEUMATOID ARTHRITIS
     Route: 048
     Dates: start: 20091222

REACTIONS (1)
  - PULPITIS DENTAL [None]
